FAERS Safety Report 9422799 (Version 4)
Quarter: 2013Q3

REPORT INFORMATION
  Report Type: Spontaneous
  Country: US (occurrence: US)
  Receive Date: 20130726
  Receipt Date: 20130918
  Transmission Date: 20140515
  Serious: Yes (Other)
  Sender: FDA-Public Use
  Company Number: US-009507513-1307USA010290

PATIENT
  Sex: Female

DRUGS (2)
  1. COPPERTONE KIDS CONTINUOUS SPRAY SPF-50 [Suspect]
     Indication: PRODUCT USED FOR UNKNOWN INDICATION
     Dosage: UNK, UNKNOWN
     Route: 061
  2. COPPERTONE KIDS CONTINUOUS SPRAY SPF-50 [Suspect]
     Dosage: UNK

REACTIONS (3)
  - Rash erythematous [Not Recovered/Not Resolved]
  - Rash papular [Not Recovered/Not Resolved]
  - Hypersensitivity [Not Recovered/Not Resolved]
